FAERS Safety Report 13151721 (Version 1)
Quarter: 2017Q1

REPORT INFORMATION
  Report Type: Spontaneous
  Country: NZ (occurrence: NZ)
  Receive Date: 20170125
  Receipt Date: 20170125
  Transmission Date: 20170428
  Serious: Yes (Other)
  Sender: FDA-Public Use
  Company Number: NZ-JNJFOC-20170120409

PATIENT

DRUGS (13)
  1. OLANZAPINE. [Suspect]
     Active Substance: OLANZAPINE
     Indication: PSYCHOTIC DISORDER
     Route: 065
  2. DEXAMETHASONE. [Suspect]
     Active Substance: DEXAMETHASONE
     Indication: PRODUCT USED FOR UNKNOWN INDICATION
     Route: 065
  3. CHLORPROMAZINE HCL [Suspect]
     Active Substance: CHLORPROMAZINE HYDROCHLORIDE
     Indication: PSYCHOTIC DISORDER
     Route: 065
  4. HALOPERIDOL. [Suspect]
     Active Substance: HALOPERIDOL
     Indication: PSYCHOTIC DISORDER
     Route: 065
  5. INDAPAMIDE. [Suspect]
     Active Substance: INDAPAMIDE
     Indication: PRODUCT USED FOR UNKNOWN INDICATION
     Route: 065
  6. TAMSULOSIN [Suspect]
     Active Substance: TAMSULOSIN
     Indication: PRODUCT USED FOR UNKNOWN INDICATION
     Route: 065
  7. RISPERIDONE. [Suspect]
     Active Substance: RISPERIDONE
     Indication: PSYCHOTIC DISORDER
     Route: 065
  8. PHENYTOIN. [Suspect]
     Active Substance: PHENYTOIN
     Indication: PRODUCT USED FOR UNKNOWN INDICATION
     Route: 065
  9. QUETIAPINE. [Suspect]
     Active Substance: QUETIAPINE
     Indication: PSYCHOTIC DISORDER
     Route: 065
  10. LEVOMEPROMAZINE [Suspect]
     Active Substance: LEVOMEPROMAZINE
     Indication: PSYCHOTIC DISORDER
     Route: 065
  11. PREDNISOLONE ACETATE. [Suspect]
     Active Substance: PREDNISOLONE ACETATE
     Indication: PRODUCT USED FOR UNKNOWN INDICATION
     Route: 065
  12. VALPROATE [Suspect]
     Active Substance: VALPROIC ACID
     Indication: PRODUCT USED FOR UNKNOWN INDICATION
     Route: 065
  13. PRAZOSIN [Suspect]
     Active Substance: PRAZOSIN
     Indication: PRODUCT USED FOR UNKNOWN INDICATION
     Route: 065

REACTIONS (1)
  - Diabetes mellitus [Unknown]
